FAERS Safety Report 6939418-1 (Version None)
Quarter: 2010Q3

REPORT INFORMATION
  Report Type: 
  Country: None (occurrence: None)
  Receive Date: 20100819
  Receipt Date: 20100806
  Transmission Date: 20110219
  Serious: Yes (Death)
  Sender: FDA-Public Use
  Company Number: 010007

PATIENT
  Age: 87 Year
  Sex: Female

DRUGS (8)
  1. PLETAL [Suspect]
     Indication: ARTERIOSCLEROSIS OBLITERANS
     Dosage: 50 MG, QD ORAL
     Route: 048
     Dates: start: 20090319, end: 20100210
  2. ASPIRIN [Concomitant]
  3. CONIEL (BENIDIPINE HYDROCHLORIDE) [Concomitant]
  4. DOXAZOSIN MESYLATE [Concomitant]
  5. TENORMIN [Concomitant]
  6. ISOSORBIDE MONONITRATE [Concomitant]
  7. ALFAROL (ALFACALCIDOL) [Concomitant]
  8. BONALON (ALENDRONATE SODIUM HYDRATE) [Concomitant]

REACTIONS (2)
  - GAIT DISTURBANCE [None]
  - INFECTION [None]
